FAERS Safety Report 12206771 (Version 3)
Quarter: 2016Q2

REPORT INFORMATION
  Report Type: Report from Study
  Country: DE (occurrence: DE)
  Receive Date: 20160324
  Receipt Date: 20160421
  Transmission Date: 20160815
  Serious: Yes (Hospitalization)
  Sender: FDA-Public Use
  Company Number: DE-AMGEN-DEUNI2016035010

PATIENT
  Age: 59 Year
  Sex: Male

DRUGS (19)
  1. ETANERCEPT [Suspect]
     Active Substance: ETANERCEPT
     Indication: RHEUMATOID ARTHRITIS
     Dosage: 50 MG, UNK
     Route: 065
  2. METHOTREXATE (METHOTREXATE SODIUM) [Suspect]
     Active Substance: METHOTREXATE SODIUM
     Indication: RHEUMATOID ARTHRITIS
     Dosage: 12.5 MG, WEEKLY
     Route: 065
     Dates: end: 201512
  3. AMLODIPINE [Concomitant]
     Active Substance: AMLODIPINE BESYLATE
  4. TOREM                              /01036501/ [Concomitant]
     Active Substance: TORSEMIDE
  5. LANTUS [Concomitant]
     Active Substance: INSULIN GLARGINE
  6. DICLOFENAC [Concomitant]
     Active Substance: DICLOFENAC
  7. HUMALOG [Concomitant]
     Active Substance: INSULIN LISPRO
  8. PREDNISOLONE. [Concomitant]
     Active Substance: PREDNISOLONE
  9. AMLODIPINE [Concomitant]
     Active Substance: AMLODIPINE BESYLATE
     Dosage: 10 (NO UNITS REPORTED)
  10. METHOTREXATE SODIUM. [Suspect]
     Active Substance: METHOTREXATE SODIUM
     Indication: RHEUMATOID ARTHRITIS
     Dosage: 12.5 MG, WEEKLY
     Route: 065
     Dates: end: 201512
  11. FOLSAN [Concomitant]
     Active Substance: FOLIC ACID
     Dosage: UNK
  12. OMEPRAZOL                          /00661201/ [Concomitant]
     Active Substance: OMEPRAZOLE
  13. KALINOR                            /00031402/ [Concomitant]
     Active Substance: POTASSIUM CITRATE
  14. CALCIUM [Concomitant]
     Active Substance: CALCIUM
     Dosage: UNK
  15. FALITHROM [Concomitant]
     Active Substance: PHENPROCOUMON
     Indication: ATRIAL FIBRILLATION
     Route: 048
  16. TILIDINE [Concomitant]
     Active Substance: TILIDINE
  17. TOREM                              /01036501/ [Concomitant]
     Active Substance: TORSEMIDE
     Dosage: 10 (NO UNITS REPORTED)
  18. KALINOR                            /00031402/ [Concomitant]
     Active Substance: POTASSIUM CITRATE
  19. OMEPRAZOL                          /00661201/ [Concomitant]
     Active Substance: OMEPRAZOLE

REACTIONS (3)
  - Condition aggravated [Recovered/Resolved]
  - Gout [Recovered/Resolved]
  - Rheumatoid arthritis [Recovered/Resolved]

NARRATIVE: CASE EVENT DATE: 201512
